FAERS Safety Report 9357528 (Version 1)
Quarter: 2013Q2

REPORT INFORMATION
  Report Type: Spontaneous
  Country: NO (occurrence: NO)
  Receive Date: 20130620
  Receipt Date: 20130620
  Transmission Date: 20140414
  Serious: Yes (Other)
  Sender: FDA-Public Use
  Company Number: NO-AMGEN-NORSP2013043035

PATIENT
  Age: 60 Year
  Sex: Male

DRUGS (6)
  1. XGEVA [Suspect]
     Indication: PROSTATE CANCER
     Dosage: 120 MG, Q4WK
     Route: 058
     Dates: start: 20120319, end: 20130528
  2. MEDROL                             /00049601/ [Concomitant]
     Indication: BLOOD CHOLESTEROL INCREASED
     Dosage: 16 MG, UNK
     Route: 048
  3. METFORMIN ACTAVIS [Concomitant]
     Indication: DIABETES MELLITUS
     Dosage: 1000 MG, TID
     Route: 048
  4. ZOLADEX                            /00732101/ [Concomitant]
     Indication: PROSTATE CANCER
     Dosage: 58 MG, Q3MO
     Route: 058
  5. LIPITOR [Concomitant]
     Indication: BLOOD CHOLESTEROL INCREASED
     Dosage: 48 MG, QD
     Route: 048
  6. METOPROLOL SANDOZ [Concomitant]
     Dosage: 200 MG, QD
     Route: 048

REACTIONS (1)
  - Osteonecrosis [Not Recovered/Not Resolved]
